FAERS Safety Report 22906519 (Version 3)
Quarter: 2023Q4

REPORT INFORMATION
  Report Type: Spontaneous
  Country: JP (occurrence: JP)
  Receive Date: 20230905
  Receipt Date: 20231003
  Transmission Date: 20240109
  Serious: Yes (Other)
  Sender: FDA-Public Use
  Company Number: JP-PFIZER INC-PV202300138082

PATIENT
  Age: 17 Year
  Sex: Female
  Weight: 48.7 kg

DRUGS (6)
  1. ATGAM [Suspect]
     Active Substance: EQUINE THYMOCYTE IMMUNE GLOBULIN
     Indication: Aplastic anaemia
     Dosage: 2000 MG, DAILY
     Route: 041
     Dates: start: 20230807, end: 20230808
  2. LENOGRASTIM [Concomitant]
     Active Substance: LENOGRASTIM
     Indication: Aplastic anaemia
     Dosage: 250 UG, DAILY
     Route: 058
     Dates: start: 20230714
  3. CEFEPIME HYDROCHLORIDE [Concomitant]
     Active Substance: CEFEPIME HYDROCHLORIDE
     Indication: Febrile neutropenia
     Dosage: 2 G, 2X/DAY
     Route: 041
     Dates: start: 20230805
  4. OMEPRAZOLE [Concomitant]
     Active Substance: OMEPRAZOLE
     Indication: Gastric ulcer
     Dosage: 20 MG, 2X/DAY
     Route: 041
     Dates: start: 20230726
  5. NEORAL [Concomitant]
     Active Substance: CYCLOSPORINE
     Indication: Aplastic anaemia
     Dosage: 75 MG, 2X/DAY
     Route: 048
     Dates: start: 20230801
  6. NEORAL [Concomitant]
     Active Substance: CYCLOSPORINE
     Indication: Aplastic anaemia
     Dosage: 25 MG, 2X/DAY
     Route: 048
     Dates: start: 20230801

REACTIONS (2)
  - Liver disorder [Recovered/Resolved]
  - Hypersensitivity [Recovered/Resolved]

NARRATIVE: CASE EVENT DATE: 20230809
